FAERS Safety Report 6359869-6 (Version None)
Quarter: 2009Q3

REPORT INFORMATION
  Report Type: 
  Country: None (occurrence: None)
  Receive Date: 20090917
  Receipt Date: 20090910
  Transmission Date: 20100115
  Serious: Yes (Life-Threatening, Hospitalization)
  Sender: FDA-Public Use
  Company Number: B0593766A

PATIENT
  Age: 46 Year
  Sex: Male

DRUGS (1)
  1. AUGMENTIN '125' [Suspect]
     Dosage: 1000MG THREE TIMES PER DAY
     Route: 048
     Dates: start: 20090816, end: 20090826

REACTIONS (2)
  - DERMATITIS ALLERGIC [None]
  - HAEMORRHAGE [None]
